FAERS Safety Report 11356467 (Version 2)
Quarter: 2016Q1

REPORT INFORMATION
  Report Type: Spontaneous
  Country: US (occurrence: US)
  Receive Date: 20150807
  Receipt Date: 20160225
  Transmission Date: 20160525
  Serious: Yes (Hospitalization, Other)
  Sender: FDA-Public Use
  Company Number: US-BAYER-2015-396001

PATIENT
  Age: 27 Year
  Sex: Female
  Weight: 113.38 kg

DRUGS (3)
  1. ZITHROMAX [Concomitant]
     Active Substance: AZITHROMYCIN DIHYDRATE
     Indication: SEXUALLY TRANSMITTED DISEASE
     Dosage: 500 MG,2 TABS
     Route: 048
  2. MIRENA [Suspect]
     Active Substance: LEVONORGESTREL
     Indication: CONTRACEPTION
     Dosage: 20 MCG/24HR, CONT
     Route: 015
     Dates: start: 200701, end: 2014
  3. METRONIDAZOLE. [Concomitant]
     Active Substance: METRONIDAZOLE
     Dosage: 500 MG,4 TABS
     Route: 048

REACTIONS (4)
  - Embedded device [None]
  - Device failure [None]
  - Device difficult to use [None]
  - Product use issue [None]

NARRATIVE: CASE EVENT DATE: 201205
